FAERS Safety Report 4353676-1 (Version None)
Quarter: 2004Q2

REPORT INFORMATION
  Report Type: 
  Country: None (occurrence: None)
  Receive Date: 20040430
  Receipt Date: 20040423
  Transmission Date: 20050107
  Serious: Yes (Hospitalization)
  Sender: FDA-Public Use
  Company Number: 2004UW06257

PATIENT
  Age: 47 Year
  Sex: Male
  Weight: 68.6746 kg

DRUGS (10)
  1. SEROQUEL [Suspect]
     Indication: SCHIZOPHRENIA
     Dosage: 300 MG TID PO
     Route: 048
     Dates: end: 20040301
  2. CLOZAPINE [Suspect]
     Indication: AGITATION
     Dosage: 150 MG BID PO
     Route: 048
     Dates: start: 20030101, end: 20040301
  3. CYANOCOBALAMIN [Concomitant]
  4. FERROUS SULFATE TAB [Concomitant]
  5. SENOKOT [Concomitant]
  6. DOCUSATE [Concomitant]
  7. BENZATROPINE [Concomitant]
  8. CELEXA [Concomitant]
  9. CLOZAPINE [Concomitant]
  10. HALOPERIDOL [Concomitant]

REACTIONS (5)
  - CONJUNCTIVITIS BACTERIAL [None]
  - DEHYDRATION [None]
  - HYPOXIA [None]
  - MENTAL STATUS CHANGES [None]
  - PNEUMONIA [None]
